FAERS Safety Report 9742841 (Version 9)
Quarter: 2014Q1

REPORT INFORMATION
  Report Type: Spontaneous
  Country: JP (occurrence: JP)
  Receive Date: 20131210
  Receipt Date: 20140220
  Transmission Date: 20141002
  Serious: Yes (Hospitalization, Disabling, Other)
  Sender: FDA-Public Use
  Company Number: JP-PFIZER INC-2013348022

PATIENT
  Age: 17 Year
  Sex: Female
  Weight: 59 kg

DRUGS (3)
  1. CABASER [Suspect]
     Indication: AMENORRHOEA
     Dosage: 1 MG, 1X/DAY (AT BED HOUR)
     Route: 048
     Dates: start: 20131025, end: 20131025
  2. CABASER [Suspect]
     Indication: HYPERPROLACTINAEMIA
     Dosage: 1 MG, 1X/DAY
     Route: 048
     Dates: start: 201311
  3. CABASER [Suspect]
     Indication: MENSTRUATION IRREGULAR

REACTIONS (12)
  - Off label use [Unknown]
  - Loss of consciousness [Recovering/Resolving]
  - Gaze palsy [Recovering/Resolving]
  - Dyskinesia [Recovered/Resolved with Sequelae]
  - Dyskinesia [Recovering/Resolving]
  - Convulsion [Unknown]
  - Headache [Recovering/Resolving]
  - Vomiting [Recovering/Resolving]
  - Hyperventilation [Recovering/Resolving]
  - Activities of daily living impaired [Recovered/Resolved]
  - Stress [Recovering/Resolving]
  - Nausea [Unknown]
